FAERS Safety Report 18252958 (Version 3)
Quarter: 2020Q4

REPORT INFORMATION
  Report Type: Report from Study
  Country: KR (occurrence: KR)
  Receive Date: 20200910
  Receipt Date: 20201112
  Transmission Date: 20210113
  Serious: Yes (Hospitalization)
  Sender: FDA-Public Use
  Company Number: KR-CLOVIS ONCOLOGY-CLO-2020-001566

PATIENT

DRUGS (3)
  1. RUCAPARIB [Suspect]
     Active Substance: RUCAPARIB
     Indication: OVARIAN CANCER
     Dosage: 600 MG, UNK
     Route: 048
     Dates: start: 20200521
  2. RUCAPARIB [Suspect]
     Active Substance: RUCAPARIB
     Dosage: 500 MG, UNK
     Route: 048
     Dates: end: 20200811
  3. NIVOLUMAB [Suspect]
     Active Substance: NIVOLUMAB
     Indication: OVARIAN CANCER
     Dosage: 480 MG, Q28CYCLICAL
     Route: 042
     Dates: start: 20200715, end: 20200812

REACTIONS (1)
  - Sepsis [Recovered/Resolved]

NARRATIVE: CASE EVENT DATE: 20200823
